FAERS Safety Report 4652036-3 (Version None)
Quarter: 2005Q2

REPORT INFORMATION
  Report Type: 
  Country: None (occurrence: None)
  Receive Date: 20050502
  Receipt Date: 20050415
  Transmission Date: 20051028
  Serious: Yes (Hospitalization)
  Sender: FDA-Public Use
  Company Number: 2005BI004260

PATIENT
  Age: 51 Year
  Sex: Female

DRUGS (24)
  1. AVONEX [Suspect]
     Indication: RELAPSING-REMITTING MULTIPLE SCLEROSIS
     Dosage: 30 UG;QW; IM
     Route: 030
     Dates: start: 20020401
  2. AVONEX [Suspect]
     Indication: RELAPSING-REMITTING MULTIPLE SCLEROSIS
     Dosage: 30 UG;QW; IM
     Route: 030
     Dates: start: 20030711
  3. DETROL [Concomitant]
  4. ASPIRIN [Concomitant]
  5. ACETAMINOPHEN [Concomitant]
  6. CALCIUM GLUCONATE [Concomitant]
  7. VITAMIN D [Concomitant]
  8. COD-LIVER OIL [Concomitant]
  9. VICODIN [Concomitant]
  10. VITAMIN B COMPLEX (THIAMINE HYDROCHLORIDE, RIBOFLAVIN, PYRIDOXINE HYDR [Concomitant]
  11. OMNIGEST EZ [Concomitant]
  12. TYLENOL SORE THROAT [Concomitant]
  13. EQUATE CHILDREN'S COLD AND ALLERGY ELIXIR [Concomitant]
  14. IBUPROFEN [Concomitant]
  15. SEPTOCAINE [Concomitant]
  16. DIAZEPAM [Concomitant]
  17. MEPERIDINE [Concomitant]
  18. ZOSYN [Concomitant]
  19. DULCOLAX [Concomitant]
  20. TRAMADOL HCL [Concomitant]
  21. METAMUCIL-2 [Concomitant]
  22. NOVOCAINE [Concomitant]
  23. CHLORZOXAZONE [Concomitant]
  24. DEMEROL [Concomitant]

REACTIONS (5)
  - APPENDICITIS PERFORATED [None]
  - BACK INJURY [None]
  - ILEUS [None]
  - OVARIAN CYST [None]
  - PERITONITIS [None]
